FAERS Safety Report 15805209 (Version 1)
Quarter: 2019Q1

REPORT INFORMATION
  Report Type: Spontaneous
  Country: US (occurrence: US)
  Receive Date: 20190110
  Receipt Date: 20190110
  Transmission Date: 20190417
  Serious: Yes (Hospitalization)
  Sender: FDA-Public Use
  Company Number: US-BIOGEN-2019BI00680281

PATIENT
  Age: 6 Year
  Sex: Female

DRUGS (3)
  1. SPINRAZA [Suspect]
     Active Substance: NUSINERSEN
     Indication: SPINAL MUSCULAR ATROPHY
     Dosage: FIRST 3 LOADING DOSES EVERY 14 DAYS; 4TH LOADING DOSE ONE AFTER 30 DAYS. THEN ONE EVERY 4 MONTHS.
     Route: 065
     Dates: start: 20170407
  2. SPINRAZA [Suspect]
     Active Substance: NUSINERSEN
     Route: 065
  3. SPINRAZA [Suspect]
     Active Substance: NUSINERSEN
     Route: 065

REACTIONS (1)
  - Respiratory tract infection [Recovered/Resolved]

NARRATIVE: CASE EVENT DATE: 20181201
